FAERS Safety Report 24667678 (Version 1)
Quarter: 2024Q4

REPORT INFORMATION
  Report Type: Spontaneous
  Country: US (occurrence: US)
  Receive Date: 20241126
  Receipt Date: 20241126
  Transmission Date: 20250115
  Serious: No
  Sender: GILEAD
  Company Number: US-GILEAD-2024-0695196

PATIENT
  Age: 55 Year
  Sex: Female

DRUGS (1)
  1. BIKTARVY [Suspect]
     Active Substance: BICTEGRAVIR SODIUM\EMTRICITABINE\TENOFOVIR ALAFENAMIDE FUMARATE
     Indication: HIV infection
     Dosage: 50/200/25MG
     Route: 065
     Dates: start: 2021, end: 202408

REACTIONS (1)
  - Product use issue [Not Recovered/Not Resolved]
